FAERS Safety Report 11437360 (Version 1)
Quarter: 2015Q3

REPORT INFORMATION
  Report Type: Spontaneous
  Country: US (occurrence: US)
  Receive Date: 20150821
  Receipt Date: 20150821
  Transmission Date: 20151125
  Serious: No
  Sender: FDA-Public Use
  Company Number: US-ELI_LILLY_AND_COMPANY-US200704003337

PATIENT
  Age: 45 Year
  Sex: Female

DRUGS (4)
  1. CARAFATE [Concomitant]
     Active Substance: SUCRALFATE
     Dosage: UNK, UNKNOWN
     Route: 065
  2. CYMBALTA [Suspect]
     Active Substance: DULOXETINE HYDROCHLORIDE
     Indication: DEPRESSION
     Dosage: 60 MG, UNK
     Dates: start: 200611
  3. NEXIUM [Concomitant]
     Active Substance: ESOMEPRAZOLE MAGNESIUM
     Indication: DYSPEPSIA
     Dosage: UNK, UNKNOWN
     Route: 065
  4. CARAFATE [Concomitant]
     Active Substance: SUCRALFATE
     Dosage: UNK, UNKNOWN
     Route: 065

REACTIONS (1)
  - Dysphonia [Unknown]
